FAERS Safety Report 4316826-9 (Version None)
Quarter: 2004Q1

REPORT INFORMATION
  Report Type: 
  Country: None (occurrence: None)
  Receive Date: 20040311
  Receipt Date: 20040227
  Transmission Date: 20041129
  Serious: Yes (Hospitalization)
  Sender: FDA-Public Use
  Company Number: ES-JNJFOC-20040204301

PATIENT
  Age: 68 Year
  Sex: Male

DRUGS (5)
  1. REMICADE [Suspect]
     Indication: RHEUMATOID ARTHRITIS
     Dosage: 300 MG, INTRAVENOUS; 400 MG, INTRAVENOUS
     Route: 042
     Dates: start: 20030731, end: 20040213
  2. REMICADE [Suspect]
     Indication: RHEUMATOID ARTHRITIS
     Dosage: 300 MG, INTRAVENOUS; 400 MG, INTRAVENOUS
     Route: 042
     Dates: start: 20030123
  3. LEFLUNOMIDE (LEFLUNOMIDE) [Concomitant]
  4. PREDNISONE [Concomitant]
  5. INACID (INDOMETACIN) [Concomitant]

REACTIONS (6)
  - ANGIONEUROTIC OEDEMA [None]
  - DIARRHOEA [None]
  - HYPOTENSION [None]
  - INFUSION RELATED REACTION [None]
  - PNEUMONIA [None]
  - SYNCOPE [None]
